FAERS Safety Report 16029637 (Version 1)
Quarter: 2019Q1

REPORT INFORMATION
  Report Type: Spontaneous
  Country: US (occurrence: US)
  Receive Date: 20190204
  Receipt Date: 20190204
  Transmission Date: 20190418
  Serious: Yes (Hospitalization)
  Sender: FDA-Public Use
  Company Number: None

PATIENT
  Age: 45 Year
  Sex: Female
  Weight: 74.9 kg

DRUGS (2)
  1. RIBOCICLIB. [Suspect]
     Active Substance: RIBOCICLIB
     Indication: DRUG THERAPY
     Route: 048
     Dates: start: 20190104, end: 20190116
  2. GEMCITABINE [Suspect]
     Active Substance: GEMCITABINE\GEMCITABINE HYDROCHLORIDE
     Indication: DRUG THERAPY
     Dosage: 2X PER CYCLE IV
     Route: 042
     Dates: start: 20181228, end: 20190118

REACTIONS (2)
  - Pyrexia [None]
  - Thrombocytopenia [None]

NARRATIVE: CASE EVENT DATE: 20190124
